FAERS Safety Report 5623687-4 (Version None)
Quarter: 2008Q1

REPORT INFORMATION
  Report Type: 
  Country: None (occurrence: None)
  Receive Date: 20080212
  Receipt Date: 20080206
  Transmission Date: 20080703
  Serious: Yes (Death)
  Sender: FDA-Public Use
  Company Number: US-BRISTOL-MYERS SQUIBB COMPANY-13840822

PATIENT
  Age: 42 Year
  Sex: Female

DRUGS (3)
  1. ORENCIA [Suspect]
     Indication: RHEUMATOID ARTHRITIS
     Dosage: FINAL INFUSION DATE - 28JUN07
     Route: 042
     Dates: start: 20060817, end: 20070628
  2. CELECOXIB [Concomitant]
  3. ACETAMINOPHEN AND HYDROCODONE BITARTRATE [Concomitant]
     Dosage: REFILLED HYDROCODONE + ACETAMINOPHEN PRESCRIPTION ON 05-APR-2007.

REACTIONS (1)
  - DEATH [None]
